FAERS Safety Report 20178477 (Version 3)
Quarter: 2022Q1

REPORT INFORMATION
  Report Type: Spontaneous
  Country: CA (occurrence: CA)
  Receive Date: 20211214
  Receipt Date: 20220322
  Transmission Date: 20220423
  Serious: Yes (Death, Life-Threatening, Hospitalization, Other)
  Sender: FDA-Public Use
  Company Number: CA-JNJFOC-20211130618

PATIENT
  Age: 22 Year
  Sex: Female

DRUGS (22)
  1. OLANZAPINE [Suspect]
     Active Substance: OLANZAPINE
     Indication: Anxiety
     Dosage: UNK
     Route: 048
  2. OLANZAPINE [Suspect]
     Active Substance: OLANZAPINE
     Indication: Cyclic vomiting syndrome
     Dosage: UNK
     Route: 042
  3. OLANZAPINE [Suspect]
     Active Substance: OLANZAPINE
     Dosage: 5 MILLIGRAM (AT 14:35 H)
     Route: 065
  4. ONDANSETRON [Suspect]
     Active Substance: ONDANSETRON
     Indication: Nausea
     Dosage: 8 MILLIGRAM (11:45 H )
     Route: 065
  5. ONDANSETRON [Suspect]
     Active Substance: ONDANSETRON
     Indication: Cyclic vomiting syndrome
     Dosage: UNK
     Route: 042
  6. ONDANSETRON [Suspect]
     Active Substance: ONDANSETRON
     Indication: Cannabinoid hyperemesis syndrome
     Dosage: UNK
     Route: 048
  7. ONDANSETRON [Suspect]
     Active Substance: ONDANSETRON
     Indication: Vomiting
  8. HALOPERIDOL [Suspect]
     Active Substance: HALOPERIDOL
     Indication: Anxiety
     Dosage: UNK
     Route: 048
  9. HALOPERIDOL [Suspect]
     Active Substance: HALOPERIDOL
     Indication: Cyclic vomiting syndrome
     Dosage: UNK
     Route: 042
  10. KETOROLAC [Suspect]
     Active Substance: KETOROLAC TROMETHAMINE
     Indication: Product used for unknown indication
     Dosage: UNK
     Route: 048
  11. KETOROLAC [Suspect]
     Active Substance: KETOROLAC TROMETHAMINE
     Dosage: UNK
     Route: 042
  12. GRAVOL [Concomitant]
     Active Substance: DIMENHYDRINATE
     Indication: Nausea
     Dosage: UNK
     Route: 042
  13. GRAVOL [Concomitant]
     Active Substance: DIMENHYDRINATE
     Indication: Cyclic vomiting syndrome
     Dosage: UNK
     Route: 048
  14. GRAVOL [Concomitant]
     Active Substance: DIMENHYDRINATE
     Dosage: 50 MILLIGRAM (AT 18:00 H )
     Route: 065
  15. LORAZEPAM [Concomitant]
     Active Substance: LORAZEPAM
     Indication: Cyclic vomiting syndrome
     Dosage: UNK
     Route: 048
  16. LORAZEPAM [Concomitant]
     Active Substance: LORAZEPAM
     Indication: Nausea
     Dosage: UNK
     Route: 042
  17. POTASSIUM PHOSPHATE [Concomitant]
     Active Substance: POTASSIUM PHOSPHATE
     Indication: Product used for unknown indication
     Dosage: 6.8 MILLIEQUIVALENT, 3 TOTAL
     Route: 042
  18. DIMENHYDRINATE [Concomitant]
     Active Substance: DIMENHYDRINATE
     Indication: Product used for unknown indication
     Dosage: 50 MILLIGRAM
     Route: 065
  19. SALINE [Concomitant]
     Active Substance: SODIUM CHLORIDE
     Indication: Fluid replacement
     Dosage: UNK
     Route: 065
  20. METOCLOPRAMIDE [Concomitant]
     Active Substance: METOCLOPRAMIDE
     Indication: Product used for unknown indication
     Dosage: UNK
     Route: 048
  21. METOCLOPRAMIDE [Concomitant]
     Active Substance: METOCLOPRAMIDE
     Dosage: UNK
     Route: 042
  22. CANNABIS SATIVA SUBSP. INDICA TOP [Concomitant]
     Active Substance: CANNABIS SATIVA SUBSP. INDICA TOP
     Indication: Product used for unknown indication
     Dosage: UNK
     Route: 065

REACTIONS (25)
  - Pneumonia [Fatal]
  - Myocardial reperfusion injury [Fatal]
  - Ventricular fibrillation [Fatal]
  - Hypoxic-ischaemic encephalopathy [Fatal]
  - Brain injury [Fatal]
  - Pulmonary embolism [Fatal]
  - Cardiac arrest [Fatal]
  - Electrocardiogram QT prolonged [Fatal]
  - Arrhythmia [Fatal]
  - Brain death [Fatal]
  - Torsade de pointes [Fatal]
  - Cardio-respiratory arrest [Fatal]
  - Apallic syndrome [Fatal]
  - Blood creatinine increased [Fatal]
  - Blood phosphorus decreased [Fatal]
  - Blood sodium decreased [Fatal]
  - Bradycardia [Fatal]
  - Hypertension [Fatal]
  - Hypokalaemia [Fatal]
  - Mucosal dryness [Fatal]
  - Myocardial reperfusion injury [Fatal]
  - Off label use [Fatal]
  - Anxiety [Fatal]
  - Nausea [Fatal]
  - Vomiting [Fatal]
